FAERS Safety Report 9166839 (Version 1)
Quarter: 2013Q1

REPORT INFORMATION
  Report Type: Report from Study
  Country: BR (occurrence: BR)
  Receive Date: 20130316
  Receipt Date: 20130316
  Transmission Date: 20140127
  Serious: Yes (Hospitalization)
  Sender: FDA-Public Use
  Company Number: BR-US-EMD SERONO, INC.-7199214

PATIENT
  Sex: Male

DRUGS (1)
  1. REBIF [Suspect]
     Indication: SECONDARY PROGRESSIVE MULTIPLE SCLEROSIS
     Dates: start: 20020205

REACTIONS (1)
  - Central nervous system inflammation [Unknown]
